FAERS Safety Report 23718412 (Version 1)
Quarter: 2024Q2

REPORT INFORMATION
  Report Type: Spontaneous
  Country: CN (occurrence: CN)
  Receive Date: 20240408
  Receipt Date: 20240408
  Transmission Date: 20240716
  Serious: Yes (Hospitalization, Other)
  Sender: FDA-Public Use
  Company Number: CN-PFIZER INC-PV202400044055

PATIENT
  Age: 13 Year
  Sex: Female
  Weight: 52 kg

DRUGS (1)
  1. ZYVOX [Suspect]
     Active Substance: LINEZOLID
     Indication: Infectious pleural effusion
     Dosage: 0.6 G, 2X/DAY
     Route: 048
     Dates: start: 20231202, end: 20240327

REACTIONS (7)
  - Syncope [Recovering/Resolving]
  - Hypoaesthesia [Unknown]
  - Hypoacusis [Recovering/Resolving]
  - Visual acuity reduced [Recovering/Resolving]
  - Abdominal pain [Unknown]
  - Pyrexia [Unknown]
  - Off label use [Unknown]

NARRATIVE: CASE EVENT DATE: 20231203
